FAERS Safety Report 15467463 (Version 6)
Quarter: 2018Q4

REPORT INFORMATION
  Report Type: Spontaneous
  Country: US (occurrence: US)
  Receive Date: 20181005
  Receipt Date: 20181026
  Transmission Date: 20190204
  Serious: Yes (Hospitalization, Other)
  Sender: FDA-Public Use
  Company Number: US-TEVA-2018-US-961171

PATIENT
  Age: 76 Year
  Sex: Female

DRUGS (2)
  1. PERMECRM-A (PERMETHRIN) [Suspect]
     Active Substance: PERMETHRIN
     Indication: ACARODERMATITIS
  2. PERMECRM-A (PERMETHRIN) [Suspect]
     Active Substance: PERMETHRIN
     Indication: RASH
     Route: 065
     Dates: start: 20180929, end: 20180929

REACTIONS (20)
  - Rash generalised [Not Recovered/Not Resolved]
  - Peripheral swelling [Not Recovered/Not Resolved]
  - Peripheral swelling [Not Recovered/Not Resolved]
  - Epilepsy [Unknown]
  - General physical health deterioration [Unknown]
  - Burning sensation [Not Recovered/Not Resolved]
  - Drug ineffective [Not Recovered/Not Resolved]
  - Paraesthesia [Not Recovered/Not Resolved]
  - Paraesthesia [Not Recovered/Not Resolved]
  - Anaphylactic shock [Unknown]
  - Pruritus [Not Recovered/Not Resolved]
  - Folliculitis [Not Recovered/Not Resolved]
  - Insomnia [Not Recovered/Not Resolved]
  - Irritability [Unknown]
  - Malaise [Unknown]
  - Hypersensitivity [Unknown]
  - Swelling [Not Recovered/Not Resolved]
  - Nipple pain [Not Recovered/Not Resolved]
  - Genital pain [Not Recovered/Not Resolved]
  - Blister [Unknown]

NARRATIVE: CASE EVENT DATE: 20180929
